FAERS Safety Report 14300441 (Version 3)
Quarter: 2018Q2

REPORT INFORMATION
  Report Type: Spontaneous
  Country: BR (occurrence: BR)
  Receive Date: 20171219
  Receipt Date: 20180426
  Transmission Date: 20180711
  Serious: Yes (Other)
  Sender: FDA-Public Use
  Company Number: BR-ABBVIE-17P-020-2196586-00

PATIENT
  Sex: Male
  Weight: 58 kg

DRUGS (12)
  1. FRISIUM [Concomitant]
     Active Substance: CLOBAZAM
     Indication: PRODUCT USED FOR UNKNOWN INDICATION
     Route: 065
  2. DEPAKOTE [Suspect]
     Active Substance: DIVALPROEX SODIUM
     Indication: EPILEPSY
     Dosage: DAILY DOSE: 1500 MG (12 CAPSULE), PERIOD OF USE: WHEN PATIENT WAS YOUNGER
     Route: 065
  3. DEPAKOTE [Suspect]
     Active Substance: DIVALPROEX SODIUM
     Dosage: 4 CAPSULES; DOSAGE INCREASED TO 4 CAPSULES A DAY (AS PATIENT PRRESENTED A PSYCHOTIC BREAK)
     Route: 048
  4. GABAPENTINA [Concomitant]
     Active Substance: GABAPENTIN
     Indication: EPILEPSY
     Dosage: DAILY DOSE: 300 MG AT NIGHT
     Route: 048
     Dates: start: 201711
  5. DEPAKENE [Suspect]
     Active Substance: VALPROIC ACID
     Indication: PRODUCT USED FOR UNKNOWN INDICATION
     Route: 065
  6. DEPAKOTE [Suspect]
     Active Substance: DIVALPROEX SODIUM
     Dosage: DAILY DOSE: 5 CAPSULES; DOSAGE DECREASED TO 5 CAPSULES A DAY AFTER SUSPICIOUS OF ALLERGY
     Route: 048
     Dates: start: 2017
  7. DEPAKOTE [Suspect]
     Active Substance: DIVALPROEX SODIUM
     Route: 048
  8. DEPAKOTE [Suspect]
     Active Substance: DIVALPROEX SODIUM
     Dosage: 2 CAPSULES IN THE MORNING / 3 CAPSULES AT NIGHT
     Route: 048
  9. DEPAKOTE [Suspect]
     Active Substance: DIVALPROEX SODIUM
     Dosage: DAILY DOSE: 6 CAPSULE; DOSAGE WAS INCREASED FROM 5 TO 6 CAPSULES A DAY
     Route: 048
     Dates: start: 2017
  10. DEPAKOTE [Suspect]
     Active Substance: DIVALPROEX SODIUM
     Dosage: 3 CAPSULES; DECREASED FROM 5 TO 3 CAPSULES A DAY, (AFTER 7 MONTHS WITH NO SEIZURE)
     Route: 048
  11. CANNABIDIOL [Concomitant]
     Active Substance: CANNABIDIOL
     Indication: SEIZURE
     Dosage: PATIENT HAVE ALREADY TAKEN MANY UNSPECIFIED CANNABIDIOL TYPES SINCE 4 YEARS AGO
     Route: 065
  12. CANNABIDIOL [Concomitant]
     Active Substance: CANNABIDIOL
     Indication: SEIZURE
     Route: 065
     Dates: start: 201801

REACTIONS (14)
  - Psychotic disorder [Not Recovered/Not Resolved]
  - Agitation [Unknown]
  - Nervousness [Not Recovered/Not Resolved]
  - Pyrexia [Not Recovered/Not Resolved]
  - Drug hypersensitivity [Not Recovered/Not Resolved]
  - Skin discolouration [Recovered/Resolved]
  - Abnormal behaviour [Unknown]
  - Drug administered to patient of inappropriate age [Recovered/Resolved]
  - Product quality issue [Unknown]
  - Drug ineffective [Unknown]
  - Brain malformation [Unknown]
  - Skin discolouration [Not Recovered/Not Resolved]
  - Off label use [Recovered/Resolved]
  - Seizure [Recovering/Resolving]

NARRATIVE: CASE EVENT DATE: 2017
